FAERS Safety Report 20168558 (Version 1)
Quarter: 2021Q4

REPORT INFORMATION
  Report Type: Spontaneous
  Country: AR (occurrence: None)
  Receive Date: 20211210
  Receipt Date: 20211210
  Transmission Date: 20220303
  Serious: Yes (Other)
  Sender: FDA-Public Use
  Company Number: AR-ROCHE-2972354

PATIENT
  Age: 58 Year
  Sex: Female

DRUGS (5)
  1. ATEZOLIZUMAB [Suspect]
     Active Substance: ATEZOLIZUMAB
     Indication: Lung adenocarcinoma stage IV
     Dosage: DOSE WAS NOT REPORTED - 2ND LINE OF TREATMENT
     Route: 041
  2. RAMUCIRUMAB [Suspect]
     Active Substance: RAMUCIRUMAB
     Indication: Lung adenocarcinoma stage IV
     Dosage: DOSE WAS NOT REPORTED
     Route: 065
     Dates: start: 20210707, end: 20210819
  3. CARBOPLATIN [Concomitant]
     Active Substance: CARBOPLATIN
     Indication: Lung adenocarcinoma stage IV
     Dosage: AUC 5; FREQUENCY WAS NOT REPORTED
  4. PEMETREXED [Concomitant]
     Active Substance: PEMETREXED
     Indication: Lung adenocarcinoma stage IV
     Dosage: DOSE WAS NOT REPORTED
  5. DOCETAXEL [Concomitant]
     Active Substance: DOCETAXEL
     Indication: Lung adenocarcinoma stage IV
     Dates: start: 20210707, end: 20211021

REACTIONS (3)
  - Hepatotoxicity [Unknown]
  - Epistaxis [Unknown]
  - Dyspnoea [Unknown]
